FAERS Safety Report 6772265-2 (Version None)
Quarter: 2010Q2

REPORT INFORMATION
  Report Type: 
  Country: None (occurrence: None)
  Receive Date: 20100616
  Receipt Date: 20091110
  Transmission Date: 20101027
  Serious: No
  Sender: FDA-Public Use
  Company Number: US-ASTRAZENECA-2009SE24639

PATIENT
  Sex: Female
  Weight: 69.4 kg

DRUGS (2)
  1. PULMICORT FLEXHALER [Suspect]
     Indication: BRONCHITIS
     Route: 055
  2. TYLENOL W/ CODEINE NO. 3 [Concomitant]

REACTIONS (5)
  - AGGRESSION [None]
  - AGITATION [None]
  - DEPRESSION [None]
  - INCREASED APPETITE [None]
  - WEIGHT INCREASED [None]
